FAERS Safety Report 19173315 (Version 8)
Quarter: 2022Q1

REPORT INFORMATION
  Report Type: Report from Study
  Country: CA (occurrence: CA)
  Receive Date: 20210423
  Receipt Date: 20220104
  Transmission Date: 20220423
  Serious: Yes (Other)
  Sender: FDA-Public Use
  Company Number: CA-JNJFOC-20210228461

PATIENT
  Sex: Female

DRUGS (5)
  1. REMICADE [Suspect]
     Active Substance: INFLIXIMAB
     Indication: Psoriasis
     Dosage: THE THERAPY START DATE ALSO REPORTED AS 16-JUL-2021,02-NOV-2021
     Route: 042
     Dates: start: 20201013
  2. REMICADE [Suspect]
     Active Substance: INFLIXIMAB
     Indication: Pyoderma gangrenosum
  3. REMICADE [Suspect]
     Active Substance: INFLIXIMAB
     Indication: Rheumatoid arthritis
  4. COVID-19 VACCINE NOS [Suspect]
     Active Substance: COVID-19 VACCINE NOS
     Indication: COVID-19 prophylaxis
     Dosage: 21-JUN-2021-2ND DOSE
     Route: 065
  5. SULPHATRIM [Concomitant]
     Indication: Prophylaxis
     Dosage: 1 TABLET
     Route: 065

REACTIONS (8)
  - Pyoderma gangrenosum [Recovered/Resolved]
  - Cellulitis [Not Recovered/Not Resolved]
  - Infection [Recovered/Resolved]
  - Pain in extremity [Recovered/Resolved]
  - Pain [Recovered/Resolved]
  - Headache [Recovered/Resolved]
  - Cystitis [Recovered/Resolved]
  - Breast calcifications [Unknown]

NARRATIVE: CASE EVENT DATE: 20210101
